FAERS Safety Report 8775318 (Version 1)
Quarter: 2012Q4

REPORT INFORMATION
  Report Type: 
  Country: JP (occurrence: JP)
  Receive Date: 20120910
  Receipt Date: 20120910
  Transmission Date: 20130627
  Serious: Yes (Other)
  Sender: FDA-Public Use
  Company Number: JP-ASTRAZENECA-2012SE69243

PATIENT
  Age: 36 Year
  Sex: Female

DRUGS (3)
  1. MARCAIN [Suspect]
     Indication: SPINAL ANAESTHESIA
     Dosage: Number of separate dosages unknown
     Route: 029
  2. OXYTOCIN [Concomitant]
     Dosage: Number of separate dosages unknown
     Route: 015
  3. METHYLERGOMETRINE [Concomitant]
     Dosage: Number of separate dosages unknown
     Route: 042

REACTIONS (3)
  - Cerebral vasoconstriction [Recovering/Resolving]
  - Blood pressure increased [None]
  - Subarachnoid haemorrhage [None]
